FAERS Safety Report 23646100 (Version 1)
Quarter: 2024Q1

REPORT INFORMATION
  Report Type: Report from Study
  Country: US (occurrence: US)
  Receive Date: 20240319
  Receipt Date: 20240319
  Transmission Date: 20240410
  Serious: No
  Sender: FDA-Public Use
  Company Number: US-ESPERIONTHERAPEUTICS-2023USA00434

PATIENT
  Age: 68 Year
  Sex: Female

DRUGS (2)
  1. BEMPEDOIC ACID\EZETIMIBE [Suspect]
     Active Substance: BEMPEDOIC ACID\EZETIMIBE
     Indication: Blood cholesterol increased
     Dosage: 180/10 MILLIGRAM, UNK
     Route: 048
     Dates: start: 202208
  2. BEMPEDOIC ACID\EZETIMIBE [Suspect]
     Active Substance: BEMPEDOIC ACID\EZETIMIBE
     Indication: Hypercholesterolaemia
     Dosage: 180/10, MILLIGRAM, UNK
     Route: 048
     Dates: start: 20230401, end: 20230405

REACTIONS (6)
  - Asthenia [Recovered/Resolved]
  - Pyrexia [Unknown]
  - Chills [Unknown]
  - Erythema [Unknown]
  - Product communication issue [Unknown]
  - Sinusitis [Unknown]

NARRATIVE: CASE EVENT DATE: 20230401
